FAERS Safety Report 12212721 (Version 3)
Quarter: 2017Q4

REPORT INFORMATION
  Report Type: Spontaneous
  Country: US (occurrence: US)
  Receive Date: 20160328
  Receipt Date: 20171114
  Transmission Date: 20180320
  Serious: Yes (Hospitalization)
  Sender: FDA-Public Use
  Company Number: US-CIPLA LTD.-2016US02870

PATIENT

DRUGS (1)
  1. LAMOTRIGINE. [Suspect]
     Active Substance: LAMOTRIGINE
     Indication: BIPOLAR DISORDER
     Dosage: UNK
     Route: 065

REACTIONS (4)
  - Tubulointerstitial nephritis and uveitis syndrome [Recovering/Resolving]
  - Transaminases increased [Recovering/Resolving]
  - Retinal pigment epitheliopathy [Recovering/Resolving]
  - Leukocytosis [Unknown]
